FAERS Safety Report 8823352 (Version 1)
Quarter: 2012Q4

REPORT INFORMATION
  Report Type: 
  Country: GB (occurrence: GB)
  Receive Date: 20121003
  Receipt Date: 20121003
  Transmission Date: 20130627
  Serious: Yes (Hospitalization)
  Sender: FDA-Public Use
  Company Number: GB-ELI_LILLY_AND_COMPANY-GB201209006160

PATIENT
  Age: 74 Year
  Sex: Female
  Weight: 86 kg

DRUGS (9)
  1. EXENATIDE [Suspect]
     Indication: DIABETES MELLITUS
     Dosage: UNK, qd
     Route: 058
     Dates: start: 20111104, end: 20120706
  2. AMLODIPINE [Concomitant]
  3. ASPIRIN [Concomitant]
  4. CO-CODAMOL [Concomitant]
  5. FLUOXETINE [Concomitant]
  6. INDAPAMIDE [Concomitant]
  7. METFORMIN [Concomitant]
  8. RAMIPRIL [Concomitant]
  9. SIMVASTATIN [Concomitant]

REACTIONS (5)
  - Ketoacidosis [Unknown]
  - Urinary tract infection bacterial [Unknown]
  - Malaise [Unknown]
  - Renal failure acute [Unknown]
  - Pancreatitis [Recovering/Resolving]
